FAERS Safety Report 5062748-8 (Version None)
Quarter: 2006Q3

REPORT INFORMATION
  Report Type: 
  Country: None (occurrence: None)
  Receive Date: 20060724
  Receipt Date: 20060713
  Transmission Date: 20061208
  Serious: Yes (Other)
  Sender: FDA-Public Use
  Company Number: GXKR2006DE04025

PATIENT
  Age: 61 Year
  Sex: Male

DRUGS (1)
  1. ASPIRIN [Suspect]
     Indication: ARTHRALGIA
     Dosage: 5-6 G, D

REACTIONS (4)
  - GAIT DISTURBANCE [None]
  - VESTIBULAR DISORDER [None]
  - VISION BLURRED [None]
  - VISUAL DISTURBANCE [None]
